FAERS Safety Report 25025768 (Version 1)
Quarter: 2025Q1

REPORT INFORMATION
  Report Type: Spontaneous
  Country: US (occurrence: US)
  Receive Date: 20250301
  Receipt Date: 20250301
  Transmission Date: 20250409
  Serious: No
  Sender: NOVO NORDISK
  Company Number: US-NOVOPROD-1223733

PATIENT
  Sex: Female

DRUGS (1)
  1. VICTOZA [Suspect]
     Active Substance: LIRAGLUTIDE
     Indication: Product used for unknown indication
     Dates: end: 20240501

REACTIONS (4)
  - Visual impairment [Unknown]
  - Diarrhoea [Recovered/Resolved]
  - Constipation [Unknown]
  - Nausea [Recovered/Resolved]
